FAERS Safety Report 5053566-5 (Version None)
Quarter: 2006Q3

REPORT INFORMATION
  Report Type: 
  Country: None (occurrence: None)
  Receive Date: 20060712
  Receipt Date: 20060620
  Transmission Date: 20061208
  Serious: Yes (Other)
  Sender: FDA-Public Use
  Company Number: 076-20785-06070078

PATIENT
  Age: 50 Year
  Sex: Female

DRUGS (6)
  1. THALIDOMIDE (THALIDOMIDE) (CAPSULES) [Suspect]
     Indication: MULTIPLE MYELOMA
     Dosage: 100 MG, 1 IN 1 D, ORAL
     Route: 048
     Dates: start: 20040401
  2. RIBAVIRIN [Concomitant]
  3. BISPHOSPHONATES (BISPHOSPHONATES) [Concomitant]
  4. METHYLPREDNISOLONE [Concomitant]
  5. CYTOXANE (CYCLOPHOSPHAMIDE) [Concomitant]
  6. PEG-INTRON [Concomitant]

REACTIONS (3)
  - COMPRESSION FRACTURE [None]
  - PARAPARESIS [None]
  - SPINAL CORD DISORDER [None]
